FAERS Safety Report 5560069-8 (Version None)
Quarter: 2007Q4

REPORT INFORMATION
  Report Type: 
  Country: None (occurrence: None)
  Receive Date: 20071214
  Receipt Date: 20071024
  Transmission Date: 20080405
  Serious: No
  Sender: FDA-Public Use
  Company Number: US-ABBOTT-07P-163-0422205-00

PATIENT
  Sex: Female

DRUGS (14)
  1. HUMIRA [Suspect]
     Indication: PSORIATIC ARTHROPATHY
     Route: 058
     Dates: start: 20050101, end: 20070701
  2. CELECOXIB [Suspect]
     Indication: ARTHRALGIA
     Dates: end: 20070701
  3. PREDNISONE [Concomitant]
     Indication: PAIN
  4. PREDNISONE [Concomitant]
     Indication: PSORIASIS
  5. PIOGLITAZONE [Concomitant]
     Indication: DIABETES MELLITUS
  6. VERAPAMIL [Concomitant]
     Indication: HYPERTENSION
  7. INFLIXIMAB [Concomitant]
     Indication: ARTHRITIS
     Dates: start: 20070917
  8. ASCORBIC ACID [Concomitant]
     Indication: DRUG USE FOR UNKNOWN INDICATION
  9. CALCIUM WITH D [Concomitant]
     Indication: DRUG USE FOR UNKNOWN INDICATION
  10. METHOTREXATE [Concomitant]
     Indication: DRUG USE FOR UNKNOWN INDICATION
  11. METANEX [Concomitant]
     Indication: VITAMIN SUPPLEMENTATION
  12. EZETIMIBE [Concomitant]
     Indication: BLOOD CHOLESTEROL
  13. NICOTINIC ACID [Concomitant]
     Indication: DRUG USE FOR UNKNOWN INDICATION
  14. FISH OIL [Concomitant]
     Indication: DRUG USE FOR UNKNOWN INDICATION

REACTIONS (2)
  - DRUG INEFFECTIVE [None]
  - RASH [None]
